FAERS Safety Report 15330931 (Version 1)
Quarter: 2018Q3

REPORT INFORMATION
  Report Type: Spontaneous
  Country: US (occurrence: US)
  Receive Date: 20180829
  Receipt Date: 20180829
  Transmission Date: 20181010
  Serious: No
  Sender: FDA-Public Use
  Company Number: US-PFIZER INC-2018347730

PATIENT
  Age: 58 Year
  Sex: Male
  Weight: 60 kg

DRUGS (2)
  1. CAMPTOSAR [Suspect]
     Active Substance: IRINOTECAN HYDROCHLORIDE
     Dosage: 280 MG, 1X/DAY
     Route: 042
     Dates: start: 20180806, end: 20180819
  2. CAMPTOSAR [Suspect]
     Active Substance: IRINOTECAN HYDROCHLORIDE
     Indication: COLON CANCER
     Dosage: UNK, 1X/DAY
     Route: 042
     Dates: start: 20180709, end: 2018

REACTIONS (1)
  - Weight increased [Unknown]

NARRATIVE: CASE EVENT DATE: 201808
